FAERS Safety Report 8135257-7 (Version None)
Quarter: 2012Q1

REPORT INFORMATION
  Report Type: 
  Country: None (occurrence: None)
  Receive Date: 20120214
  Receipt Date: 20120209
  Transmission Date: 20120608
  Serious: Yes (Other)
  Sender: FDA-Public Use
  Company Number: US-BAYER-2012-007777

PATIENT
  Age: 22 Year
  Sex: Male

DRUGS (1)
  1. SORAFENIB (RAF KINASE INHIBITOR) [Suspect]
     Indication: HEPATIC NEOPLASM MALIGNANT
     Dosage: 200 MG, BID
     Dates: start: 20120121

REACTIONS (10)
  - HEPATIC PAIN [None]
  - CHEST PAIN [None]
  - NAUSEA [None]
  - APHAGIA [None]
  - ARTHRALGIA [None]
  - ABDOMINAL PAIN UPPER [None]
  - RASH [None]
  - JOINT SWELLING [None]
  - VOMITING [None]
  - INSOMNIA [None]
